FAERS Safety Report 20304086 (Version 1)
Quarter: 2022Q1

REPORT INFORMATION
  Report Type: Spontaneous
  Country: US (occurrence: None)
  Receive Date: 20220105
  Receipt Date: 20220105
  Transmission Date: 20220424
  Serious: No
  Sender: FDA-Public Use
  Company Number: None

PATIENT
  Age: 64 Year
  Sex: Female
  Weight: 78.3 kg

DRUGS (1)
  1. CASIRIVIMAB\IMDEVIMAB [Suspect]
     Active Substance: CASIRIVIMAB\IMDEVIMAB
     Indication: COVID-19
     Dates: start: 20220102, end: 20220102

REACTIONS (5)
  - Infusion related reaction [None]
  - Dizziness [None]
  - Feeling hot [None]
  - Back pain [None]
  - Muscular weakness [None]

NARRATIVE: CASE EVENT DATE: 20220102
